FAERS Safety Report 6765161-8 (Version None)
Quarter: 2010Q2

REPORT INFORMATION
  Report Type: 
  Country: None (occurrence: None)
  Receive Date: 20100610
  Receipt Date: 20100610
  Transmission Date: 20101027
  Serious: No
  Sender: FDA-Public Use
  Company Number: None

PATIENT
  Sex: Female
  Weight: 81.6475 kg

DRUGS (1)
  1. PERCOCET [Suspect]
     Indication: KNEE ARTHROPLASTY
     Dosage: DO NOT REMEMBER DAILY
     Dates: start: 20070101, end: 20070228

REACTIONS (3)
  - HALLUCINATION [None]
  - IMPAIRED WORK ABILITY [None]
  - MEMORY IMPAIRMENT [None]
